FAERS Safety Report 19921779 (Version 1)
Quarter: 2021Q4

REPORT INFORMATION
  Report Type: Spontaneous
  Country: US (occurrence: US)
  Receive Date: 20211005
  Receipt Date: 20211005
  Transmission Date: 20220303
  Serious: No
  Sender: FDA-Public Use
  Company Number: US-SA-SAC20210928000446

PATIENT
  Sex: Female

DRUGS (2)
  1. DUPIXENT [Suspect]
     Active Substance: DUPILUMAB
     Indication: Nasal polyps
     Dosage: 300 MG, QOW
     Route: 058
     Dates: start: 202004, end: 202104
  2. DUPIXENT [Suspect]
     Active Substance: DUPILUMAB
     Dosage: UNK
     Dates: start: 20210914

REACTIONS (7)
  - Nasal polyps [Unknown]
  - Paranasal sinus inflammation [Unknown]
  - Sneezing [Unknown]
  - Cough [Unknown]
  - Insomnia [Unknown]
  - Hypersensitivity [Unknown]
  - Conjunctivitis [Recovered/Resolved]
